FAERS Safety Report 22241926 (Version 7)
Quarter: 2023Q2

REPORT INFORMATION
  Report Type: Report from Study
  Country: US (occurrence: US)
  Receive Date: 20230421
  Receipt Date: 20230627
  Transmission Date: 20230721
  Serious: No
  Sender: FDA-Public Use
  Company Number: US-002147023-NVSC2023US091066

PATIENT
  Sex: Female

DRUGS (3)
  1. ENTRESTO [Suspect]
     Active Substance: SACUBITRIL\VALSARTAN
     Indication: Product used for unknown indication
     Dosage: 1 DOSAGE FORM, BID
     Route: 048
     Dates: start: 202302
  2. JARDIANCE [Concomitant]
     Active Substance: EMPAGLIFLOZIN
     Indication: Product used for unknown indication
     Dosage: UNK (AT A TIME OF STARTING ENTRESTO)
     Route: 065
     Dates: start: 2023
  3. JARDIANCE [Concomitant]
     Active Substance: EMPAGLIFLOZIN
     Dosage: UNK
     Route: 065
     Dates: start: 20230608

REACTIONS (6)
  - Abnormal faeces [Unknown]
  - Weight decreased [Recovering/Resolving]
  - Gastrointestinal infection [Unknown]
  - Diverticulum [Unknown]
  - Blood glucose increased [Unknown]
  - Cough [Unknown]
